FAERS Safety Report 13382435 (Version 13)
Quarter: 2021Q2

REPORT INFORMATION
  Report Type: Report from Study
  Country: AT (occurrence: AT)
  Receive Date: 20170329
  Receipt Date: 20210510
  Transmission Date: 20210716
  Serious: Yes (Hospitalization)
  Sender: FDA-Public Use
  Company Number: AT-PFIZER INC-2017131481

PATIENT
  Age: 53 Year
  Sex: Female
  Weight: 72.5 kg

DRUGS (58)
  1. KABI GLUTAMINE [Concomitant]
     Active Substance: GLUTAMINE
     Dosage: UNK ML, AS NEEDED
     Route: 048
     Dates: start: 20170925
  2. MOLAXOLE [Concomitant]
     Active Substance: POLYETHYLENE GLYCOL 3350\POTASSIUM CHLORIDE\SODIUM BICARBONATE\SODIUM CHLORIDE
     Indication: CONSTIPATION PROPHYLAXIS
     Dosage: 1 DF (SACHET), AS NEEDED
     Route: 048
     Dates: start: 20160311, end: 201612
  3. PANTOPRAZOL [Concomitant]
     Active Substance: PANTOPRAZOLE SODIUM
     Indication: GASTRITIS PROPHYLAXIS
     Dosage: 40 MG, 1X/DAY, 1?0?0
     Route: 048
     Dates: start: 20160725, end: 20170320
  4. THYREX [Concomitant]
     Active Substance: LEVOTHYROXINE SODIUM
     Dosage: 150 UG, 1X/DAY, 1?0?0
     Dates: end: 201710
  5. VERAPABENE [Concomitant]
     Indication: MINERAL SUPPLEMENTATION
     Dosage: 120 MG, 2X/DAY, 1?0?1
     Route: 048
     Dates: start: 201605
  6. ZOFRAN [Concomitant]
     Active Substance: ONDANSETRON HYDROCHLORIDE
     Indication: NAUSEA
     Dosage: 8 MG, 2X/DAY, 1?0?1
     Dates: start: 20170630, end: 20170705
  7. RINGER LACTATE [CALCIUM CHLORIDE DIHYDRATE;POTASSIUM CHLORIDE;SODIUM C [Concomitant]
     Indication: DEHYDRATION
     Dosage: UNK
     Dates: start: 201710, end: 201710
  8. ISOPTIN [Concomitant]
     Active Substance: VERAPAMIL HYDROCHLORIDE
     Indication: HYPERTENSION
     Dosage: UNK
     Dates: start: 201703
  9. GLANDOMED [Concomitant]
     Indication: STOMATITIS
     Dosage: UNK ML AS NEEDED
     Route: 048
     Dates: start: 20170302, end: 20170324
  10. XARELTO [Concomitant]
     Active Substance: RIVAROXABAN
     Indication: PULMONARY EMBOLISM
     Dosage: 15 MG, 1X/DAY, 1?0?0
     Route: 048
     Dates: start: 20161119, end: 20161208
  11. FENISTIL [Concomitant]
     Active Substance: DIMETHINDENE
     Indication: PROPHYLAXIS
     Dosage: 4 MG, 1X/DAY
     Route: 043
     Dates: start: 20170323, end: 20170323
  12. OLEOVIT D3 [Concomitant]
     Active Substance: CHOLECALCIFEROL
     Indication: OSTEOPOROSIS PROPHYLAXIS
     Dosage: 30 GTT, 2X/WEEK
     Route: 048
     Dates: start: 20170324
  13. NEUROMULTIVIT [Concomitant]
     Active Substance: CYANOCOBALAMIN\PYRIDOXINE\THIAMINE
     Indication: ARTHRALGIA
     Dosage: UNK, 1X/DAY
     Route: 042
     Dates: start: 20170321, end: 20170324
  14. DRONABINOL. [Concomitant]
     Active Substance: DRONABINOL
     Dosage: UNK
     Dates: start: 201710
  15. EUTHYROX [Concomitant]
     Active Substance: LEVOTHYROXINE SODIUM
     Indication: HYPOTHYROIDISM
     Dosage: UNK
     Dates: start: 201710
  16. ISOPTIN [Concomitant]
     Active Substance: VERAPAMIL HYDROCHLORIDE
     Dosage: 120 MG, 2X/DAY
     Route: 048
     Dates: start: 20171015
  17. FORTECORTIN [Concomitant]
     Active Substance: DEXAMETHASONE
     Dosage: 8 MG, 2X/DAY
     Route: 048
     Dates: start: 20171003, end: 20171004
  18. HYDAL RETARD [Concomitant]
     Active Substance: HYDROMORPHONE HYDROCHLORIDE
     Indication: ARTHRALGIA
     Dosage: 4 MG, 2X/DAY, 1?0?0?1
     Route: 048
     Dates: start: 20160311, end: 201611
  19. NEURONTIN [Concomitant]
     Active Substance: GABAPENTIN
     Indication: ARTHRALGIA
     Dosage: 300 MG, 2X/DAY, 1?0?1
     Route: 048
     Dates: start: 20160802, end: 201703
  20. PASPERTIN [Concomitant]
     Dosage: 10 MG, 3X/DAY
     Route: 048
     Dates: start: 20170324, end: 20170630
  21. INLYTA [Suspect]
     Active Substance: AXITINIB
     Dosage: 3 MG, 2X/DAY
     Dates: end: 20171015
  22. HYDAL [Concomitant]
     Active Substance: HYDROMORPHONE HYDROCHLORIDE
     Indication: ARTHRALGIA
     Dosage: 1.3 MG, AS NEEDED
     Route: 048
     Dates: start: 201603, end: 201609
  23. HYDAL [Concomitant]
     Active Substance: HYDROMORPHONE HYDROCHLORIDE
     Dosage: 1.3 MG, AS NEEDED
     Dates: start: 20161215, end: 20170707
  24. HYDAL RETARD [Concomitant]
     Active Substance: HYDROMORPHONE HYDROCHLORIDE
     Dosage: 6 MG, 1X/DAY, 1?0?0
     Dates: start: 20170703, end: 20170703
  25. THYREX [Concomitant]
     Active Substance: LEVOTHYROXINE SODIUM
     Dosage: 150 UG, 1X/DAY, 1?0?0
     Route: 048
     Dates: start: 20170218, end: 20170323
  26. CANDESARTAN. [Concomitant]
     Active Substance: CANDESARTAN
     Indication: HYPERTENSION
     Dosage: 8 MG, AS NEEDED
     Dates: start: 20160205, end: 201707
  27. ZOFRAN [Concomitant]
     Active Substance: ONDANSETRON HYDROCHLORIDE
     Dosage: 4 MG, 2X/DAY, 1?0?1
     Dates: start: 20170706
  28. INLYTA [Suspect]
     Active Substance: AXITINIB
     Indication: METASTATIC RENAL CELL CARCINOMA
     Dosage: 3 MG, 2X/DAY
     Dates: start: 20160905, end: 201703
  29. ZOFRAN [Concomitant]
     Active Substance: ONDANSETRON HYDROCHLORIDE
     Indication: NAUSEA
     Dosage: 8 MG, UNK
     Dates: start: 201602, end: 20170324
  30. NOVALGIN [Concomitant]
     Indication: ARTHRALGIA
     Dosage: 500 MG, AS NEEDED
     Route: 048
     Dates: start: 2016
  31. HYDAL RETARD [Concomitant]
     Active Substance: HYDROMORPHONE HYDROCHLORIDE
     Dosage: 2 MG, 1X/DAY, 0?0?1
     Dates: start: 20170703
  32. PANTOPRAZOL [Concomitant]
     Active Substance: PANTOPRAZOLE SODIUM
     Dosage: 40 MG, 1X/DAY, 1?0?0
     Route: 048
     Dates: start: 20170321
  33. THYREX [Concomitant]
     Active Substance: LEVOTHYROXINE SODIUM
     Indication: HYPOTHYROIDISM
     Dosage: 50 UG, 1X/DAY
     Route: 048
     Dates: start: 20160429, end: 20161130
  34. CANDESARTAN HCT [Concomitant]
     Active Substance: CANDESARTAN CILEXETIL\HYDROCHLOROTHIAZIDE
     Indication: HYPERTENSION
     Dosage: 1 DF (16/12.5), 1X/DAY
     Route: 048
     Dates: start: 20160205, end: 20170922
  35. NEURONTIN [Concomitant]
     Active Substance: GABAPENTIN
     Dosage: UNK
  36. LASIX [Concomitant]
     Active Substance: FUROSEMIDE
     Indication: FLUID RETENTION
     Dosage: 40 MG, 1X/DAY
     Route: 048
     Dates: start: 20170703, end: 20170712
  37. PASPERTIN [Concomitant]
     Indication: NAUSEA
     Dosage: 10 MG, 3X/DAY
     Route: 042
     Dates: start: 20170321, end: 20170323
  38. PASPERTIN [Concomitant]
     Dosage: 10 MG, AS NEEDED
     Route: 042
     Dates: start: 20171015, end: 20171015
  39. DRONABINOL. [Concomitant]
     Active Substance: DRONABINOL
     Indication: DECREASED APPETITE
     Dosage: UNK
     Dates: start: 201707, end: 201707
  40. FORTECORTIN [Concomitant]
     Active Substance: DEXAMETHASONE
     Indication: CONTRAST MEDIA REACTION
     Dosage: 8 MG, AS NEEDED
     Route: 048
     Dates: start: 201703, end: 201703
  41. HEPARIN [Concomitant]
     Active Substance: HEPARIN SODIUM
     Indication: PULMONARY EMBOLISM
     Dosage: UNK
     Dates: start: 20161111, end: 20161118
  42. XARELTO [Concomitant]
     Active Substance: RIVAROXABAN
     Dosage: 20 MG, 1X/DAY, 1?0?0
     Route: 048
     Dates: start: 20170323
  43. HYDAL RETARD [Concomitant]
     Active Substance: HYDROMORPHONE HYDROCHLORIDE
     Dosage: 2MG (0?0?1) /4 MG (1?0?0) 1X/DAY,
     Route: 048
     Dates: start: 201611, end: 20170630
  44. HYDAL RETARD [Concomitant]
     Active Substance: HYDROMORPHONE HYDROCHLORIDE
     Dosage: 4 MG, 1X/DAY, 1?0?0
     Dates: start: 20170704
  45. THYREX [Concomitant]
     Active Substance: LEVOTHYROXINE SODIUM
     Dosage: 50 UG, 1X/DAY, 1?0?0
     Route: 048
     Dates: start: 20170324, end: 20170518
  46. ULSAL [Concomitant]
     Active Substance: RANITIDINE HYDROCHLORIDE
     Indication: CONTRAST MEDIA REACTION
     Dosage: 50 MG, 1X/DAY
     Route: 042
     Dates: start: 20170323, end: 20170323
  47. TANTUM VERDE [Concomitant]
     Active Substance: BENZYDAMINE HYDROCHLORIDE
     Indication: STOMATITIS
     Dosage: UNK ML, AS NEEDED
     Route: 048
     Dates: start: 201604, end: 20170301
  48. HYDAL RETARD [Concomitant]
     Active Substance: HYDROMORPHONE HYDROCHLORIDE
     Dosage: 8 MG (IN MORNINGS), 4 MG IN EVENINGS, EACH 1X/DAY
     Route: 048
     Dates: start: 20170701, end: 20170702
  49. THYREX [Concomitant]
     Active Substance: LEVOTHYROXINE SODIUM
     Dosage: 100 UG, 1X/DAY, 1?0?0
     Route: 048
     Dates: start: 20161215, end: 20170217
  50. NEURONTIN [Concomitant]
     Active Substance: GABAPENTIN
     Dosage: 300 MG, 2X/DAY, 1?0?1
     Route: 048
     Dates: start: 201704, end: 20170808
  51. NEODOLPASSE [Concomitant]
     Active Substance: DICLOFENAC SODIUM\ORPHENADRINE CITRATE
     Indication: SPINAL PAIN
     Dosage: 75 MG, AS NEEDED
     Route: 042
     Dates: start: 20170701, end: 20170701
  52. INLYTA [Suspect]
     Active Substance: AXITINIB
     Dosage: 3 MG, 2X/DAY
     Dates: start: 20170327, end: 20170630
  53. KABI GLUTAMINE [Concomitant]
     Active Substance: GLUTAMINE
     Indication: STOMATITIS
     Dosage: UNK ML, AS NEEDED
     Dates: start: 201612, end: 20170324
  54. ATORVASTATIN CALCIUM. [Concomitant]
     Active Substance: ATORVASTATIN CALCIUM
     Indication: HYPERCHOLESTEROLAEMIA
     Dosage: UNK ML, 1X/DAY, 1?0?0
     Route: 048
     Dates: start: 201611, end: 20170810
  55. XARELTO [Concomitant]
     Active Substance: RIVAROXABAN
     Dosage: 20 MG, 1X/DAY, 1?0?0
     Route: 048
     Dates: start: 20161207, end: 20170320
  56. XGEVA [Concomitant]
     Active Substance: DENOSUMAB
     Indication: METASTASES TO BONE
     Dosage: UNK UNK, CYCLIC, EVERY 4 WEEKS
     Route: 058
     Dates: start: 201701
  57. THYREX [Concomitant]
     Active Substance: LEVOTHYROXINE SODIUM
     Dosage: 75 UG, 1X/DAY, 1?0?0
     Route: 048
     Dates: start: 20161201, end: 20161214
  58. GYNO?PEVARYL [Concomitant]
     Active Substance: ECONAZOLE NITRATE
     Indication: CANDIDA INFECTION
     Dosage: UNK
     Dates: start: 20170813, end: 20170815

REACTIONS (12)
  - General physical health deterioration [Recovered/Resolved]
  - General physical health deterioration [Recovered/Resolved]
  - Gastritis [Recovered/Resolved]
  - General physical health deterioration [Recovered/Resolved]
  - Nausea [Recovered/Resolved]
  - Nausea [Recovered/Resolved]
  - Headache [Recovered/Resolved]
  - Abdominal pain upper [Recovered/Resolved]
  - Decreased appetite [Not Recovered/Not Resolved]
  - General physical health deterioration [Not Recovered/Not Resolved]
  - Dehydration [Recovered/Resolved]
  - Decreased appetite [Not Recovered/Not Resolved]

NARRATIVE: CASE EVENT DATE: 201609
